FAERS Safety Report 13147772 (Version 2)
Quarter: 2017Q1

REPORT INFORMATION
  Report Type: Spontaneous
  Country: US (occurrence: US)
  Receive Date: 20170124
  Receipt Date: 20170124
  Transmission Date: 20170428
  Serious: No
  Sender: FDA-Public Use
  Company Number: US-AMGEN-USASP2016168543

PATIENT
  Age: 72 Year
  Sex: Female

DRUGS (6)
  1. ALLEGRA-D [Concomitant]
     Active Substance: FEXOFENADINE\PSEUDOEPHEDRINE
  2. BABY ASPIRIN [Concomitant]
     Active Substance: ASPIRIN
  3. MULTIPLE VITAMINS [Concomitant]
     Active Substance: VITAMINS
  4. LIDODERM [Concomitant]
     Active Substance: LIDOCAINE
  5. TYLENOL [Concomitant]
     Active Substance: ACETAMINOPHEN
  6. REPATHA [Suspect]
     Active Substance: EVOLOCUMAB
     Indication: PRODUCT USED FOR UNKNOWN INDICATION
     Dosage: 140 MG, Q2WK
     Route: 065
     Dates: start: 20160627, end: 20161128

REACTIONS (1)
  - Myalgia [Unknown]
